APPROVED DRUG PRODUCT: VIDAZA
Active Ingredient: AZACITIDINE
Strength: 100MG/VIAL
Dosage Form/Route: POWDER;INTRAVENOUS, SUBCUTANEOUS
Application: N050794 | Product #001 | TE Code: AP
Applicant: BRISTOL-MYERS SQUIBB CO
Approved: May 19, 2004 | RLD: Yes | RS: Yes | Type: RX

EXCLUSIVITY:
Code: ODE-399 | Date: May 20, 2029